FAERS Safety Report 25273089 (Version 2)
Quarter: 2025Q2

REPORT INFORMATION
  Report Type: Spontaneous
  Country: IT (occurrence: IT)
  Receive Date: 20250506
  Receipt Date: 20250630
  Transmission Date: 20250717
  Serious: Yes (Death, Other)
  Sender: AMICUS THERAPEUTICS
  Company Number: IT-AMICUS THERAPEUTICS, INC.-AMI_3990

PATIENT
  Age: 67 Year
  Sex: Female

DRUGS (1)
  1. GALAFOLD [Suspect]
     Active Substance: MIGALASTAT HYDROCHLORIDE
     Indication: Cardiac disorder
     Dosage: 1 DOSAGE FORM, QOD
     Route: 048
     Dates: start: 201812

REACTIONS (2)
  - Pneumonia [Fatal]
  - Off label use [Unknown]

NARRATIVE: CASE EVENT DATE: 20181201
